FAERS Safety Report 16993986 (Version 1)
Quarter: 2019Q4

REPORT INFORMATION
  Report Type: Spontaneous
  Country: US (occurrence: US)
  Receive Date: 20191105
  Receipt Date: 20191105
  Transmission Date: 20200122
  Serious: No
  Sender: FDA-Public Use
  Company Number: US-ASTRAZENECA-2019SF46436

PATIENT
  Sex: Male
  Weight: 74.8 kg

DRUGS (1)
  1. BRILINTA [Suspect]
     Active Substance: TICAGRELOR
     Indication: STENT PLACEMENT
     Route: 048
     Dates: start: 20191010, end: 20191010

REACTIONS (3)
  - Headache [Unknown]
  - Instillation site pruritus [Unknown]
  - Irritability [Unknown]
